FAERS Safety Report 5442531-1 (Version None)
Quarter: 2007Q3

REPORT INFORMATION
  Report Type: 
  Country: None (occurrence: None)
  Receive Date: 20070830
  Receipt Date: 20070823
  Transmission Date: 20080115
  Serious: Yes (Other)
  Sender: FDA-Public Use
  Company Number: S07-USA-03054-01

PATIENT
  Age: 39 Year
  Sex: Female

DRUGS (3)
  1. LEVOTHROID [Suspect]
     Indication: HYPOTHYROIDISM
     Dosage: 112 MCG QD PO
     Route: 048
     Dates: start: 20050101, end: 20070701
  2. LEVOTHROID [Suspect]
     Indication: HYPOTHYROIDISM
     Dosage: 100 MCG QD PO
     Route: 048
     Dates: end: 20050101
  3. LEVOTHROID [Suspect]
     Indication: HYPOTHYROIDISM
     Dosage: 125 MCG QD PO
     Route: 048
     Dates: start: 20070702

REACTIONS (2)
  - BLOOD THYROID STIMULATING HORMONE DECREASED [None]
  - HEPATIC STEATOSIS [None]
